FAERS Safety Report 10633033 (Version 1)
Quarter: 2014Q4

REPORT INFORMATION
  Report Type: Spontaneous
  Country: US (occurrence: US)
  Receive Date: 20141205
  Receipt Date: 20141205
  Transmission Date: 20150529
  Serious: No
  Sender: FDA-Public Use
  Company Number: US-BRISTOL-MYERS SQUIBB COMPANY-21345475

PATIENT
  Age: 69 Year
  Sex: Female

DRUGS (5)
  1. FUROSEMIDE. [Concomitant]
     Active Substance: FUROSEMIDE
  2. CAPTOPRIL. [Concomitant]
     Active Substance: CAPTOPRIL
  3. NADOLOL. [Concomitant]
     Active Substance: NADOLOL
  4. ELIQUIS [Suspect]
     Active Substance: APIXABAN
     Indication: CEREBROVASCULAR ACCIDENT PROPHYLAXIS
  5. SPIRONOLACTONE. [Concomitant]
     Active Substance: SPIRONOLACTONE

REACTIONS (7)
  - Chest discomfort [Unknown]
  - Increased tendency to bruise [Unknown]
  - Fatigue [Unknown]
  - Haemorrhage [Unknown]
  - Arthralgia [Unknown]
  - Drug dose omission [Unknown]
  - Wheezing [Unknown]

NARRATIVE: CASE EVENT DATE: 201408
